FAERS Safety Report 9305821 (Version 1)
Quarter: 2013Q2

REPORT INFORMATION
  Report Type: Spontaneous
  Country: IT (occurrence: None)
  Receive Date: 20130515
  Receipt Date: 20130515
  Transmission Date: 20140414
  Serious: Yes (Other)
  Sender: FDA-Public Use
  Company Number: 2013036035

PATIENT
  Age: 57 Year
  Sex: Female

DRUGS (9)
  1. ALBUREX [Suspect]
     Indication: HEPATIC CIRRHOSIS
     Dosage: 37.5 G  1X/WEEK, 37.5 G WEEKLY SPECIFIED)
     Route: 042
  2. OMEPRAZOLE [Concomitant]
  3. CANRENONE [Concomitant]
  4. FURPSEMIDE (FUROSEMIDE) [Concomitant]
  5. FOLIC ACID [Suspect]
  6. PHYTOMENADIONE (PHYTOMENADIONE)-ORAL [Concomitant]
  7. PORTOLAC (LACTITOL)-ORAL [Concomitant]
  8. EPARGRISEOVIT (EPARGRISEOVIT) - ORAL [Concomitant]
  9. PROPRANOL (PROPRANOLOL) - ORAL [Concomitant]

REACTIONS (2)
  - Swelling [None]
  - Weight increased [None]
